FAERS Safety Report 20145430 (Version 1)
Quarter: 2021Q4

REPORT INFORMATION
  Report Type: Report from Study
  Country: CZ (occurrence: CZ)
  Receive Date: 20211203
  Receipt Date: 20211203
  Transmission Date: 20220303
  Serious: Yes (Other)
  Sender: FDA-Public Use
  Company Number: CZ-LUNDBECK-DKLU3041480

PATIENT
  Age: 26 Year
  Sex: Female
  Weight: 79 kg

DRUGS (11)
  1. EPTINEZUMAB [Suspect]
     Active Substance: EPTINEZUMAB
     Indication: Migraine
     Route: 041
     Dates: start: 20201210, end: 20201210
  2. EPTINEZUMAB [Suspect]
     Active Substance: EPTINEZUMAB
     Route: 041
     Dates: start: 20210304, end: 20210304
  3. EPTINEZUMAB [Suspect]
     Active Substance: EPTINEZUMAB
     Route: 041
     Dates: start: 20210527, end: 20210527
  4. EPTINEZUMAB [Suspect]
     Active Substance: EPTINEZUMAB
     Route: 041
     Dates: start: 20210817, end: 20210817
  5. EPTINEZUMAB [Suspect]
     Active Substance: EPTINEZUMAB
     Dosage: INFUSION INCOMPLETE, 105 ML LEFT IN THE BAG
     Route: 041
     Dates: start: 20211124, end: 20211124
  6. EUTHYROX [Concomitant]
     Active Substance: LEVOTHYROXINE SODIUM
     Indication: Hypothyroidism
     Dosage: FREQUENCY: 3 TIMES A WEEK
     Route: 048
     Dates: start: 2015
  7. EUTHYROX [Concomitant]
     Active Substance: LEVOTHYROXINE SODIUM
     Dosage: FREQUENCY: 4 TIMES A WEEK
     Route: 048
     Dates: start: 2015
  8. MAGNESIUM CARBONATE\MAGNESIUM OXIDE [Concomitant]
     Active Substance: MAGNESIUM CARBONATE\MAGNESIUM OXIDE
     Indication: Magnesium deficiency
     Route: 048
     Dates: start: 2017
  9. SUMATRIPTAN [Concomitant]
     Active Substance: SUMATRIPTAN
     Indication: Migraine
     Dosage: PRN
     Route: 048
     Dates: start: 2013
  10. COMIRNATY [Concomitant]
     Active Substance: TOZINAMERAN
     Indication: COVID-19 prophylaxis
     Dosage: ONCE
     Route: 030
     Dates: start: 20210924, end: 20210924
  11. COMIRNATY [Concomitant]
     Active Substance: TOZINAMERAN
     Dosage: ONCE
     Route: 030
     Dates: start: 20211016, end: 20211016

REACTIONS (1)
  - Anaphylactic reaction [Recovered/Resolved]

NARRATIVE: CASE EVENT DATE: 20211124
